FAERS Safety Report 23205109 (Version 4)
Quarter: 2024Q1

REPORT INFORMATION
  Report Type: Spontaneous
  Country: SK (occurrence: SK)
  Receive Date: 20231120
  Receipt Date: 20240208
  Transmission Date: 20240409
  Serious: Yes (Other)
  Sender: FDA-Public Use
  Company Number: SK-SK LIFE SCIENCE, INC.-SKPVG-2023-001468

PATIENT

DRUGS (10)
  1. XCOPRI [Suspect]
     Active Substance: CENOBAMATE
     Indication: Focal dyscognitive seizures
     Dosage: 50 MILLIGRAM, QD
     Route: 048
     Dates: start: 202210
  2. XCOPRI [Suspect]
     Active Substance: CENOBAMATE
     Indication: Partial seizures with secondary generalisation
     Dosage: 425 MILLIGRAM
     Route: 048
  3. LEVETIRACETAM [Suspect]
     Active Substance: LEVETIRACETAM
     Indication: Focal dyscognitive seizures
     Dosage: 4000 MG (2000 MG,2 IN 1 D)
     Route: 048
     Dates: start: 202210
  4. LEVETIRACETAM [Suspect]
     Active Substance: LEVETIRACETAM
     Indication: Partial seizures with secondary generalisation
  5. PHENYTOIN [Suspect]
     Active Substance: PHENYTOIN
     Indication: Focal dyscognitive seizures
     Dosage: 150-100-150 MG
     Route: 048
     Dates: start: 202210
  6. PHENYTOIN [Suspect]
     Active Substance: PHENYTOIN
     Indication: Partial seizures with secondary generalisation
  7. CLOBAZAM [Suspect]
     Active Substance: CLOBAZAM
     Indication: Focal dyscognitive seizures
     Dosage: 30 MG (10 MG,3 IN 1 D)
     Route: 048
     Dates: start: 202210
  8. CLOBAZAM [Suspect]
     Active Substance: CLOBAZAM
     Indication: Partial seizures with secondary generalisation
  9. VALPROATE [Suspect]
     Active Substance: VALPROIC ACID
     Indication: Focal dyscognitive seizures
     Dosage: 1000-0-750 MG
     Route: 048
     Dates: start: 202210
  10. VALPROATE [Suspect]
     Active Substance: VALPROIC ACID
     Indication: Partial seizures with secondary generalisation

REACTIONS (6)
  - Hyperammonaemia [Recovered/Resolved]
  - Electroencephalogram abnormal [Recovered/Resolved]
  - Off label use [Not Recovered/Not Resolved]
  - Overdose [Not Recovered/Not Resolved]
  - Confusional state [Recovered/Resolved]
  - Sedation complication [Recovered/Resolved]
